FAERS Safety Report 7559976-6 (Version None)
Quarter: 2011Q2

REPORT INFORMATION
  Report Type: 
  Country: None (occurrence: None)
  Receive Date: 20110621
  Receipt Date: 20110609
  Transmission Date: 20111010
  Serious: Yes (Other)
  Sender: FDA-Public Use
  Company Number: PHHY2009DK14998

PATIENT
  Weight: 0.78 kg

DRUGS (2)
  1. ATOSIBAN [Concomitant]
     Route: 064
  2. DICLOFENAC SODIUM [Suspect]
     Dosage: 50 MG, TID
     Route: 064

REACTIONS (2)
  - DRUG EXPOSURE DURING PREGNANCY [None]
  - PREMATURE BABY [None]
